FAERS Safety Report 16630106 (Version 2)
Quarter: 2019Q3

REPORT INFORMATION
  Report Type: Spontaneous
  Country: NO (occurrence: NO)
  Receive Date: 20190725
  Receipt Date: 20190906
  Transmission Date: 20191004
  Serious: Yes (Death, Other)
  Sender: FDA-Public Use
  Company Number: NO-AMGEN-NORSP2019117418

PATIENT
  Age: 31 Year
  Sex: Female

DRUGS (2)
  1. PANITUMUMAB [Suspect]
     Active Substance: PANITUMUMAB
     Indication: CANCER PAIN
     Dosage: UNK
     Route: 042
  2. PANITUMUMAB [Suspect]
     Active Substance: PANITUMUMAB
     Indication: NEURALGIA

REACTIONS (3)
  - Skin toxicity [Unknown]
  - Off label use [Unknown]
  - Death [Fatal]
